FAERS Safety Report 9365321 (Version 1)
Quarter: 2013Q2

REPORT INFORMATION
  Report Type: Report from Study
  Country: CN (occurrence: CN)
  Receive Date: 20130625
  Receipt Date: 20130625
  Transmission Date: 20140414
  Serious: Yes (Other)
  Sender: FDA-Public Use
  Company Number: CN-ROCHE-1155796

PATIENT
  Sex: Female
  Weight: 65 kg

DRUGS (5)
  1. CELLCEPT [Suspect]
     Indication: RENAL TRANSPLANT
     Route: 048
     Dates: start: 20020928
  2. PREDNISONE [Suspect]
     Indication: RENAL TRANSPLANT
     Route: 048
     Dates: start: 20020928, end: 2005
  3. PREDNISONE [Suspect]
     Route: 048
     Dates: start: 2005
  4. CALCITRIOL [Suspect]
     Indication: OSTEOPOROSIS
     Route: 048
     Dates: start: 2005
  5. CYCLOSPORIN [Concomitant]
     Indication: RENAL TRANSPLANT
     Route: 048
     Dates: start: 20020928

REACTIONS (2)
  - Lower limb fracture [Not Recovered/Not Resolved]
  - Osteoporosis [Not Recovered/Not Resolved]
